FAERS Safety Report 8820804 (Version 1)
Quarter: 2012Q4

REPORT INFORMATION
  Report Type: 
  Country: CH (occurrence: CH)
  Receive Date: 20121002
  Receipt Date: 20121002
  Transmission Date: 20130627
  Serious: Yes (Hospitalization)
  Sender: FDA-Public Use
  Company Number: CH-WATSON-2012-16550

PATIENT
  Age: 78 Year
  Sex: Male

DRUGS (5)
  1. CIPROFLOXACIN HYDROCHLORIDE (UNKNOWN) [Suspect]
     Indication: URINARY TRACT INFECTION
     Route: 065
  2. SULFAMETHOXAZOLE AND TRIMETHOPRIM [Suspect]
     Indication: URINARY TRACT INFECTION
     Dosage: UNK
     Route: 065
  3. PENICILLIN NOS [Suspect]
     Indication: URINARY TRACT INFECTION
     Route: 065
  4. CEPHALOSPORIN C [Suspect]
     Indication: URINARY TRACT INFECTION
     Route: 065
  5. OCTREOTIDE [Suspect]
     Indication: ACROMEGALY
     Dosage: 10 mg, Q 6 weeks
     Route: 065

REACTIONS (6)
  - Renal failure acute [Recovered/Resolved]
  - Renal tubular disorder [Recovered/Resolved]
  - Hyperoxaluria [Recovered/Resolved]
  - Cholelithiasis [Recovered/Resolved]
  - Multiple-drug resistance [Recovered/Resolved]
  - Anaemia [Recovered/Resolved]
